FAERS Safety Report 11941355 (Version 4)
Quarter: 2018Q3

REPORT INFORMATION
  Report Type: Report from Study
  Country: US (occurrence: US)
  Receive Date: 20160122
  Receipt Date: 20180905
  Transmission Date: 20181010
  Serious: Yes (Other)
  Sender: FDA-Public Use
  Company Number: PHEH2016US001750

PATIENT
  Sex: Male

DRUGS (1)
  1. SANDOSTATIN LAR DEPOT [Suspect]
     Active Substance: OCTREOTIDE ACETATE
     Indication: PRODUCT USED FOR UNKNOWN INDICATION
     Dosage: 20 MG, ONCE A MONTH
     Route: 065
     Dates: start: 2006

REACTIONS (4)
  - Depression [Unknown]
  - Nausea [Unknown]
  - Vomiting [Unknown]
  - Neuroendocrine carcinoma [Unknown]
